FAERS Safety Report 14568368 (Version 1)
Quarter: 2018Q1

REPORT INFORMATION
  Report Type: Spontaneous
  Country: US (occurrence: US)
  Receive Date: 20180223
  Receipt Date: 20180223
  Transmission Date: 20180509
  Serious: No
  Sender: FDA-Public Use
  Company Number: US-TEVA-2018-US-862027

PATIENT
  Sex: Male

DRUGS (3)
  1. FLUVOXAMINE [Suspect]
     Active Substance: FLUVOXAMINE
     Dosage: 200 MILLIGRAM DAILY;
  2. FLUVOXAMINE [Suspect]
     Active Substance: FLUVOXAMINE
  3. FLUVOXAMINE [Suspect]
     Active Substance: FLUVOXAMINE
     Indication: OBSESSIVE-COMPULSIVE DISORDER

REACTIONS (5)
  - Sexual dysfunction [Recovered/Resolved]
  - Muscle spasms [Unknown]
  - Arthritis [Unknown]
  - Tremor [Recovered/Resolved]
  - Insomnia [Unknown]
